FAERS Safety Report 8986001 (Version 1)
Quarter: 2012Q4

REPORT INFORMATION
  Report Type: Report from Study
  Country: IL (occurrence: IL)
  Receive Date: 20121226
  Receipt Date: 20121226
  Transmission Date: 20130627
  Serious: Yes (Other)
  Sender: FDA-Public Use
  Company Number: IL-ASTELLAS-2012US012664

PATIENT

DRUGS (2)
  1. ERLOTINIB TABLET [Suspect]
     Indication: GLIOMA
     Dosage: 65 mg/m2, UID/QD for 28 days
     Route: 048
  2. RAPAMYCIN [Suspect]
     Indication: GLIOMA
     Dosage: 0.8 mg/m2, bid for 28 days
     Route: 065

REACTIONS (2)
  - Off label use [Unknown]
  - Neutropenia [Recovered/Resolved]
